FAERS Safety Report 8808560 (Version 1)
Quarter: 2012Q4

REPORT INFORMATION
  Report Type: 
  Country: AU (occurrence: None)
  Receive Date: 20120920
  Receipt Date: 20120920
  Transmission Date: 20130627
  Serious: Yes (Hospitalization, Other)
  Sender: FDA-Public Use
  Company Number: DEXA20120012

PATIENT
  Age: 14 Year
  Sex: Male

DRUGS (5)
  1. DEXAMETHASONE [Suspect]
     Indication: GLIOBLASTOMA
     Dosage: flucuating dose
     Dates: start: 200910
  2. BEVACIZUMAB [Suspect]
     Indication: GLIOBLASTOMA
     Dates: start: 201004, end: 201007
  3. IRINOTECAN [Suspect]
     Indication: GLIOBLASTOMA
     Dates: start: 201004, end: 201007
  4. TEMOZOLOMIDE (TEMOZOLOMIDE) (TEMOZOLOMIDE) [Concomitant]
  5. PROCARBAZINE (PROCARBAZINE) (PROCARBAZINE) [Concomitant]

REACTIONS (7)
  - Skin striae [None]
  - Pain [None]
  - Neutropenia [None]
  - Neurological symptom [None]
  - Condition aggravated [None]
  - Muscular weakness [None]
  - Wound dehiscence [None]
